FAERS Safety Report 9279957 (Version 1)
Quarter: 2013Q2

REPORT INFORMATION
  Report Type: Spontaneous
  Country: US (occurrence: US)
  Receive Date: 20130509
  Receipt Date: 20130509
  Transmission Date: 20140414
  Serious: No
  Sender: FDA-Public Use
  Company Number: US-B.I. PHARMACEUTICALS,INC./RIDGEFIELD-2013-BI-12635BP

PATIENT
  Sex: Female
  Weight: 100 kg

DRUGS (3)
  1. MICARDIS HCT TABLETS [Suspect]
     Indication: HYPERTENSION
     Dosage: STRENGTH: 40 MG / 12.5 MG; DAILY DOSE: 40 MG/ 12.5 MG
     Route: 048
     Dates: start: 2007, end: 201210
  2. MICARDIS HCT TABLETS [Suspect]
     Dosage: STRENGTH: 40 MG / 12.5 MG; DAILY DOSE: 80 MG/ 12.5 MG
     Route: 048
  3. MICARDIS HCT TABLETS [Suspect]
     Dosage: STRENGTH: 80 MG / 12.5 MG; DAILY DOSE: 80 MG/ 12.5 MG
     Route: 048

REACTIONS (8)
  - Hypertension [Not Recovered/Not Resolved]
  - Influenza like illness [Recovered/Resolved]
  - Cough [Not Recovered/Not Resolved]
  - Sleep apnoea syndrome [Not Recovered/Not Resolved]
  - Productive cough [Not Recovered/Not Resolved]
  - Hypothyroidism [Recovered/Resolved]
  - Thyroid function test abnormal [Recovered/Resolved]
  - Obesity [Not Recovered/Not Resolved]
